FAERS Safety Report 11638186 (Version 3)
Quarter: 2015Q4

REPORT INFORMATION
  Report Type: Spontaneous
  Country: GR (occurrence: GR)
  Receive Date: 20151016
  Receipt Date: 20151028
  Transmission Date: 20160304
  Serious: Yes (Life-Threatening, Hospitalization, Other)
  Sender: FDA-Public Use
  Company Number: GR-AMGEN-GRCSP2015106913

PATIENT
  Age: 82 Year
  Sex: Male

DRUGS (3)
  1. FIRMAGON [Concomitant]
     Active Substance: DEGARELIX ACETATE
     Dosage: UNK, QMO
     Route: 058
     Dates: start: 201508
  2. CALCIUM [Concomitant]
     Active Substance: CALCIUM
  3. XGEVA [Suspect]
     Active Substance: DENOSUMAB
     Indication: METASTASES TO BONE
     Dosage: UNK
     Route: 065
     Dates: start: 201509

REACTIONS (20)
  - Hypoaesthesia [Unknown]
  - Fatigue [Unknown]
  - Disorientation [Unknown]
  - Loss of consciousness [Unknown]
  - Transfusion [Unknown]
  - Decreased appetite [Unknown]
  - Depressed level of consciousness [Unknown]
  - General physical health deterioration [Unknown]
  - Speech disorder [Unknown]
  - Dyspnoea [Unknown]
  - Aphasia [Unknown]
  - Renal failure [Unknown]
  - Haematocrit decreased [Unknown]
  - Osteonecrosis of jaw [Unknown]
  - Gait disturbance [Unknown]
  - Arrhythmia [Unknown]
  - Hypocalcaemia [Unknown]
  - Dizziness [Unknown]
  - Condition aggravated [Unknown]
  - Vomiting [Unknown]

NARRATIVE: CASE EVENT DATE: 20150924
